FAERS Safety Report 5723419-5 (Version None)
Quarter: 2008Q2

REPORT INFORMATION
  Report Type: 
  Country: None (occurrence: None)
  Receive Date: 20080425
  Receipt Date: 20080409
  Transmission Date: 20081010
  Serious: Yes (Other)
  Sender: FDA-Public Use
  Company Number: 2008S1006358

PATIENT
  Age: 7 Year
  Sex: 0

DRUGS (1)
  1. AZATHIOPRINE [Suspect]
     Indication: COLITIS ULCERATIVE

REACTIONS (4)
  - COOMBS POSITIVE HAEMOLYTIC ANAEMIA [None]
  - GASTROINTESTINAL HAEMORRHAGE [None]
  - HYPERBILIRUBINAEMIA [None]
  - JAUNDICE [None]
